FAERS Safety Report 8852202 (Version 2)
Quarter: 2013Q1

REPORT INFORMATION
  Report Type: Spontaneous
  Country: GB (occurrence: GB)
  Receive Date: 20121022
  Receipt Date: 20130115
  Transmission Date: 20140127
  Serious: Yes (Life-Threatening, Hospitalization)
  Sender: FDA-Public Use
  Company Number: GB-BAYER-2012-091460

PATIENT
  Age: 29 Year
  Sex: Female
  Weight: 78 kg

DRUGS (1)
  1. YASMIN, FILM-COATED TABLETS, 0.03 MG/3 MG [Suspect]
     Indication: ORAL CONTRACEPTION
     Dosage: UNK
     Route: 048
     Dates: start: 20120606, end: 20120809

REACTIONS (4)
  - Headache [Unknown]
  - Intracranial venous sinus thrombosis [Recovering/Resolving]
  - Somnolence [Recovered/Resolved]
  - CSF pressure increased [Unknown]
